FAERS Safety Report 21296973 (Version 2)
Quarter: 2022Q3

REPORT INFORMATION
  Report Type: Spontaneous
  Country: RU (occurrence: RU)
  Receive Date: 20220906
  Receipt Date: 20220919
  Transmission Date: 20221027
  Serious: Yes (Other)
  Sender: FDA-Public Use
  Company Number: RU-NOVARTISPH-NVSC2022RU198111

PATIENT
  Age: 38 Year
  Sex: Female
  Weight: 60 kg

DRUGS (2)
  1. LEVOFLOXACIN [Suspect]
     Active Substance: LEVOFLOXACIN
     Indication: Nasal abscess
     Dosage: UNK
     Route: 065
  2. CHLORAMPHENICOL\6-METHYLURACIL [Suspect]
     Active Substance: CHLORAMPHENICOL\6-METHYLURACIL
     Indication: Nasal abscess
     Dosage: UNK
     Route: 065

REACTIONS (2)
  - Poisoning [Unknown]
  - Product use in unapproved indication [Unknown]
